FAERS Safety Report 11375980 (Version 1)
Quarter: 2015Q3

REPORT INFORMATION
  Report Type: Spontaneous
  Country: KR (occurrence: KR)
  Receive Date: 20150813
  Receipt Date: 20150813
  Transmission Date: 20151125
  Serious: Yes (Hospitalization)
  Sender: FDA-Public Use
  Company Number: KR-MYLANLABS-2015M1026954

PATIENT

DRUGS (6)
  1. AMITRIPTYLINE [Suspect]
     Active Substance: AMITRIPTYLINE
     Dosage: 10 MG, QD
     Dates: end: 2013
  2. CLONAZEPAM. [Concomitant]
     Active Substance: CLONAZEPAM
     Dosage: 1.5 MG, QD
     Dates: end: 2014
  3. BENZTROPINE [Concomitant]
     Active Substance: BENZTROPINE
     Dosage: 2MG QD
     Dates: end: 2014
  4. ESCITALOPRAM [Suspect]
     Active Substance: ESCITALOPRAM OXALATE
     Dosage: 5 MG, QD
     Dates: start: 2014, end: 201405
  5. TRAZODONE [Suspect]
     Active Substance: TRAZODONE HYDROCHLORIDE
     Dosage: 25 MG, QD
     Dates: start: 2014, end: 201405
  6. LORAZEPAM. [Concomitant]
     Active Substance: LORAZEPAM
     Dosage: 2 MG, QD
     Dates: end: 2013

REACTIONS (2)
  - Dystonia [Not Recovered/Not Resolved]
  - Tardive dyskinesia [Not Recovered/Not Resolved]
